FAERS Safety Report 18579117 (Version 1)
Quarter: 2020Q4

REPORT INFORMATION
  Report Type: Spontaneous
  Country: GR (occurrence: GR)
  Receive Date: 20201204
  Receipt Date: 20201204
  Transmission Date: 20210114
  Serious: Yes (Other)
  Sender: FDA-Public Use
  Company Number: GR-LUPIN PHARMACEUTICALS INC.-2019-08195

PATIENT
  Age: 70 Year
  Sex: Female

DRUGS (1)
  1. MEFENAMIC ACID. [Suspect]
     Active Substance: MEFENAMIC ACID
     Indication: PRODUCT USED FOR UNKNOWN INDICATION
     Dosage: UNK
     Route: 065

REACTIONS (5)
  - Drug hypersensitivity [Unknown]
  - Diarrhoea [Unknown]
  - Urticaria [Unknown]
  - Loss of consciousness [Unknown]
  - Vomiting [Unknown]
